FAERS Safety Report 6661138-1 (Version None)
Quarter: 2010Q1

REPORT INFORMATION
  Report Type: 
  Country: None (occurrence: None)
  Receive Date: 20100331
  Receipt Date: 20100325
  Transmission Date: 20100710
  Serious: Yes (Hospitalization)
  Sender: FDA-Public Use
  Company Number: A0778084A

PATIENT
  Age: 63 Year
  Sex: Female

DRUGS (13)
  1. AVANDIA [Suspect]
     Dosage: 4MG PER DAY
     Route: 048
     Dates: start: 20050101, end: 20071001
  2. VALTREX [Concomitant]
  3. LEVOXYL [Concomitant]
  4. CYMBALTA [Concomitant]
  5. METFORMIN (GLUCOPHAGE) [Concomitant]
  6. PROTONIX [Concomitant]
  7. TRICOR [Concomitant]
  8. ASPIRIN [Concomitant]
     Dosage: 81MG PER DAY
  9. BENTYL [Concomitant]
  10. ZETIA [Concomitant]
  11. PERCOCET [Concomitant]
  12. SEROQUEL [Concomitant]
  13. GLIMEPIRIDE [Concomitant]

REACTIONS (4)
  - CEREBROVASCULAR ACCIDENT [None]
  - MYOCARDIAL INFARCTION [None]
  - MYOCARDIAL ISCHAEMIA [None]
  - TRANSIENT ISCHAEMIC ATTACK [None]
